FAERS Safety Report 16993121 (Version 1)
Quarter: 2019Q4

REPORT INFORMATION
  Report Type: Spontaneous
  Country: ES (occurrence: ES)
  Receive Date: 20191105
  Receipt Date: 20191105
  Transmission Date: 20200122
  Serious: Yes (Other)
  Sender: FDA-Public Use
  Company Number: ES-SA-2019SA299201

PATIENT
  Age: 55 Year
  Sex: Male

DRUGS (6)
  1. PRAMIPEXOLE. [Concomitant]
     Active Substance: PRAMIPEXOLE
     Indication: MOTOR DYSFUNCTION
     Dosage: UNK, UNK
     Route: 065
     Dates: start: 2017
  2. RASAGILINE. [Concomitant]
     Active Substance: RASAGILINE
     Indication: BRADYKINESIA
     Dosage: UNK, UNK
     Route: 065
     Dates: start: 2014
  3. CEREZYME [Suspect]
     Active Substance: IMIGLUCERASE
     Indication: GAUCHER^S DISEASE TYPE I
     Dosage: UNK, UNK
     Route: 065
     Dates: start: 2017
  4. MADOPAR [Concomitant]
     Active Substance: BENSERAZIDE HYDROCHLORIDE\LEVODOPA
     Indication: MOTOR DYSFUNCTION
     Dosage: UNK, UNK
     Route: 065
     Dates: start: 2017
  5. CLONAZEPAM. [Concomitant]
     Active Substance: CLONAZEPAM
     Indication: MOTOR DYSFUNCTION
     Dosage: UNK, UNK
     Route: 065
     Dates: start: 2017
  6. RASAGILINE. [Concomitant]
     Active Substance: RASAGILINE
     Indication: MUSCULOSKELETAL STIFFNESS

REACTIONS (10)
  - Pain [Recovering/Resolving]
  - Visuospatial deficit [Not Recovered/Not Resolved]
  - Unevaluable event [Recovering/Resolving]
  - Motor dysfunction [Recovering/Resolving]
  - On and off phenomenon [Recovering/Resolving]
  - Dementia [Unknown]
  - Cognitive disorder [Not Recovered/Not Resolved]
  - Memory impairment [Not Recovered/Not Resolved]
  - Dyskinesia [Recovering/Resolving]
  - Disease progression [Unknown]

NARRATIVE: CASE EVENT DATE: 2018
